FAERS Safety Report 4689881-4 (Version None)
Quarter: 2005Q2

REPORT INFORMATION
  Report Type: 
  Country: None (occurrence: None)
  Receive Date: 20050614
  Receipt Date: 20050607
  Transmission Date: 20051028
  Serious: Yes (Other)
  Sender: FDA-Public Use
  Company Number: US-GLAXOSMITHKLINE-A0561548A

PATIENT
  Age: 69 Year
  Sex: Male
  Weight: 100 kg

DRUGS (5)
  1. AQUAFRESH TOOTHPASTE [Suspect]
     Indication: DENTAL CARE
     Dates: start: 19780101
  2. LOTENSIN [Concomitant]
  3. CARTIA XT [Concomitant]
  4. DEPAKOTE [Concomitant]
  5. LIPITOR [Concomitant]

REACTIONS (2)
  - PARKINSON'S DISEASE [None]
  - PHARMACEUTICAL PRODUCT COMPLAINT [None]
